FAERS Safety Report 12483617 (Version 1)
Quarter: 2016Q2

REPORT INFORMATION
  Report Type: Spontaneous
  Country: None (occurrence: None)
  Receive Date: 20160617
  Receipt Date: 20160617
  Transmission Date: 20160815
  Serious: Yes (Life-Threatening)
  Sender: FDA-Public Use
  Company Number: CA-ALSI-201600159

PATIENT
  Age: 70 Year
  Sex: Female
  Weight: 66 kg

DRUGS (13)
  1. ALFENTANIL. [Suspect]
     Active Substance: ALFENTANIL
     Indication: PRODUCT USED FOR UNKNOWN INDICATION
  2. INSULIN ZINC [Concomitant]
     Active Substance: INSULIN NOS
  3. ENFLURANE. [Concomitant]
     Active Substance: ENFLURANE
  4. NITROUS OXIDE. [Suspect]
     Active Substance: NITROUS OXIDE
     Indication: PRODUCT USED FOR UNKNOWN INDICATION
  5. BECLOMETHASONE DIPROPIONATE PH. EUR. [Concomitant]
  6. ISOPTIN SR [Concomitant]
     Active Substance: VERAPAMIL HYDROCHLORIDE
  7. DROPERIDOL. [Concomitant]
     Active Substance: DROPERIDOL
  8. ATRACURIUM [Concomitant]
     Active Substance: ATRACURIUM
  9. PRINIVIL (LISINOPRIL) [Concomitant]
  10. PENTOTHAL (THIOPENTAL) [Concomitant]
  11. VENTOLIN [Concomitant]
     Active Substance: ALBUTEROL SULFATE
  12. DIGOXIN. [Concomitant]
     Active Substance: DIGOXIN
  13. PROPOFOL. [Concomitant]
     Active Substance: PROPOFOL

REACTIONS (1)
  - Angioedema [None]
